FAERS Safety Report 6357504-4 (Version None)
Quarter: 2009Q3

REPORT INFORMATION
  Report Type: 
  Country: None (occurrence: None)
  Receive Date: 20090916
  Receipt Date: 20070711
  Transmission Date: 20100115
  Serious: Yes (Hospitalization)
  Sender: FDA-Public Use
  Company Number: US-ASTRAZENECA-2009SE11162

PATIENT
  Age: 18961 Day
  Sex: Female
  Weight: 133.8 kg

DRUGS (11)
  1. SEROQUEL [Suspect]
     Dosage: 25 MG TO 200 MG
     Route: 048
     Dates: start: 20040113
  2. WELLBUTRIN XL [Concomitant]
     Dosage: 150 MG TO 450 MG
     Route: 048
     Dates: start: 20000127
  3. BUSPAR [Concomitant]
     Route: 048
     Dates: start: 20000127
  4. NEURONTIN [Concomitant]
     Dosage: 100 MG - 300 MG
     Route: 048
     Dates: start: 20000127
  5. CYCLOBENZAPRINE [Concomitant]
     Route: 048
     Dates: start: 20040219
  6. TRAMADOL HYDROCHLORIDE [Concomitant]
     Route: 048
     Dates: start: 20040219
  7. FUROSEMIDE [Concomitant]
     Dosage: 20 MG - 40 MG
     Route: 048
     Dates: start: 20040311
  8. METHYLPREDNISOLONE [Concomitant]
     Route: 048
     Dates: start: 20040420
  9. CYMBALTA [Concomitant]
     Dosage: 30 MG - 60 MG
     Route: 048
     Dates: start: 20050112
  10. PROVIGIL [Concomitant]
     Dosage: 200 MG - 300 MG
     Route: 048
     Dates: start: 20050429
  11. TRAZODONE [Concomitant]
     Route: 048
     Dates: start: 20050110

REACTIONS (17)
  - ABDOMINAL PAIN LOWER [None]
  - ADJUSTMENT DISORDER [None]
  - BACK PAIN [None]
  - BIPOLAR DISORDER [None]
  - BRONCHITIS [None]
  - CELLULITIS [None]
  - CHEST PAIN [None]
  - CHRONIC OBSTRUCTIVE PULMONARY DISEASE [None]
  - DYSPNOEA [None]
  - HYPERLIPIDAEMIA [None]
  - HYPOKALAEMIA [None]
  - HYPOXIA [None]
  - MAJOR DEPRESSION [None]
  - NEUROPATHY PERIPHERAL [None]
  - OEDEMA PERIPHERAL [None]
  - PANIC DISORDER [None]
  - PSYCHOTIC DISORDER [None]
